FAERS Safety Report 5822951-3 (Version None)
Quarter: 2008Q3

REPORT INFORMATION
  Report Type: 
  Country: None (occurrence: None)
  Receive Date: 20080725
  Receipt Date: 20080716
  Transmission Date: 20090109
  Serious: Yes (Other)
  Sender: FDA-Public Use
  Company Number: US-JNJFOC-20080605004

PATIENT
  Sex: Female

DRUGS (6)
  1. REMICADE [Suspect]
     Indication: CROHN'S DISEASE
     Route: 042
  2. IMURAN [Concomitant]
  3. QUESTRAN [Concomitant]
  4. IMODIUM [Concomitant]
  5. PREVACID [Concomitant]
  6. OSCAL [Concomitant]

REACTIONS (1)
  - KNEE ARTHROPLASTY [None]
